FAERS Safety Report 9145362 (Version 2)
Quarter: 2013Q1

REPORT INFORMATION
  Report Type: Spontaneous
  Country: US (occurrence: US)
  Receive Date: 20130307
  Receipt Date: 20130322
  Transmission Date: 20140127
  Serious: Yes (Hospitalization, Other)
  Sender: FDA-Public Use
  Company Number: US-009507513-1303USA002863

PATIENT
  Sex: Male

DRUGS (4)
  1. PEG-INTRON [Suspect]
     Indication: HEPATITIS C
     Dosage: REDIPEN
     Dates: start: 20050101
  2. PEG-INTRON [Suspect]
     Dosage: REDIPEN
     Dates: start: 20130304, end: 201303
  3. REBETOL [Suspect]
     Indication: HEPATITIS C
     Dosage: UNK
     Dates: start: 20050101
  4. REBETOL [Suspect]
     Dosage: UNK
     Dates: start: 20130304, end: 201303

REACTIONS (9)
  - Heart rate increased [Unknown]
  - Tachycardia [Unknown]
  - Dehydration [Unknown]
  - Adverse event [Unknown]
  - Fatigue [Unknown]
  - Hypotension [Unknown]
  - Chills [Unknown]
  - Dyspnoea [Unknown]
  - Injection site reaction [Unknown]
